FAERS Safety Report 5062026-7 (Version None)
Quarter: 2006Q3

REPORT INFORMATION
  Report Type: 
  Country: None (occurrence: None)
  Receive Date: 20060703
  Receipt Date: 20051021
  Transmission Date: 20061208
  Serious: No
  Sender: FDA-Public Use
  Company Number: 2005S1010475

PATIENT
  Age: 64 Year
  Sex: Male
  Weight: 80.2867 kg

DRUGS (22)
  1. CLOZAPINE [Suspect]
     Indication: SCHIZOPHRENIA, PARANOID TYPE
     Dosage: 350 MG; BID; PO
     Route: 048
     Dates: start: 20050119
  2. ACETAMINOPHEN [Concomitant]
  3. IPRATROPIUM BROMIDE/SALBUTAMOL SULFATE [Concomitant]
  4. ATENOLOL [Concomitant]
  5. BICALUTAMIDE [Concomitant]
  6. BISACODYL [Concomitant]
  7. CLONAZEPAM [Concomitant]
  8. DOCUSATE [Concomitant]
  9. SODIUM PHOSPHATE DIBASIC/SODIUM PHOSPHATE [Concomitant]
  10. WOOL FAT/PETROLATIUM/PARAFFIN, LIQUID [Concomitant]
  11. FELODIPINE [Concomitant]
  12. HALOPERIDOL [Concomitant]
  13. INSULIN [Concomitant]
  14. METFORMIN [Concomitant]
  15. NICOTINE POLACRILEX [Concomitant]
  16. TEMAZEPAM [Concomitant]
  17. TERAZOSIN HCL [Concomitant]
  18. TERBINAFINE HCL [Concomitant]
  19. TRAMADOL HCL [Concomitant]
  20. UREA [Concomitant]
  21. VALPROATE SODIUM [Concomitant]
  22. ERYTHROMYCIN [Concomitant]

REACTIONS (1)
  - GRANULOCYTOPENIA [None]
